FAERS Safety Report 5504872-9 (Version None)
Quarter: 2007Q4

REPORT INFORMATION
  Report Type: 
  Country: None (occurrence: None)
  Receive Date: 20071102
  Receipt Date: 20071022
  Transmission Date: 20080405
  Serious: Yes (Hospitalization, Other)
  Sender: FDA-Public Use
  Company Number: US-JNJFOC-20060504728

PATIENT
  Sex: Female
  Weight: 68.95 kg

DRUGS (7)
  1. DURAGESIC-100 [Suspect]
     Route: 062
  2. DURAGESIC-100 [Suspect]
     Indication: PAIN
     Route: 062
  3. DILANTIN [Concomitant]
     Indication: CONVULSION
     Route: 048
  4. KEPPRA [Concomitant]
     Indication: CONVULSION
     Route: 048
  5. ACTIQ [Concomitant]
     Indication: BREAKTHROUGH PAIN
     Route: 048
  6. OXYIR [Concomitant]
     Indication: BREAKTHROUGH PAIN
     Route: 048
  7. UNSPECIFIED MEDICATION [Concomitant]
     Indication: CONVULSION
     Route: 048

REACTIONS (7)
  - APPLICATION SITE ERYTHEMA [None]
  - CONVULSION [None]
  - DEPRESSION [None]
  - HEADACHE [None]
  - INCORRECT DRUG ADMINISTRATION DURATION [None]
  - PAIN [None]
  - WRONG TECHNIQUE IN DRUG USAGE PROCESS [None]
